FAERS Safety Report 20025331 (Version 1)
Quarter: 2021Q4

REPORT INFORMATION
  Report Type: Spontaneous
  Country: US (occurrence: US)
  Receive Date: 20211102
  Receipt Date: 20211102
  Transmission Date: 20220304
  Serious: No
  Sender: FDA-Public Use
  Company Number: US-JAZZ-2021-US-014631

PATIENT
  Age: 32 Year
  Sex: Female

DRUGS (1)
  1. XYREM [Suspect]
     Active Substance: SODIUM OXYBATE
     Indication: Product used for unknown indication
     Dosage: UNKNOWN DOSE AND UNKNOWN FREQUENCY
     Route: 048

REACTIONS (4)
  - Ataxia [Recovered/Resolved]
  - Depressed level of consciousness [Recovered/Resolved]
  - Nausea [Recovered/Resolved]
  - Extra dose administered [Unknown]
